FAERS Safety Report 6313822-7 (Version None)
Quarter: 2009Q3

REPORT INFORMATION
  Report Type: 
  Country: None (occurrence: None)
  Receive Date: 20090818
  Receipt Date: 20090817
  Transmission Date: 20100115
  Serious: Yes (Other)
  Sender: FDA-Public Use
  Company Number: IT-WYE-G04242909

PATIENT
  Sex: Male

DRUGS (3)
  1. TORISEL [Suspect]
     Indication: RENAL NEOPLASM
     Route: 042
     Dates: start: 20070901, end: 20071031
  2. SUTENT [Concomitant]
     Dosage: 25MG
     Route: 048
     Dates: start: 20070201, end: 20071031
  3. ZOMETA [Suspect]
     Indication: RENAL NEOPLASM
     Dosage: 4MG MONTHLY
     Route: 042
     Dates: start: 20050801, end: 20060930

REACTIONS (1)
  - OSTEONECROSIS [None]
